FAERS Safety Report 11406037 (Version 2)
Quarter: 2015Q3

REPORT INFORMATION
  Report Type: Spontaneous
  Country: DE (occurrence: DE)
  Receive Date: 20150821
  Receipt Date: 20150925
  Transmission Date: 20151125
  Serious: Yes (Hospitalization, Other)
  Sender: FDA-Public Use
  Company Number: DE-ELI_LILLY_AND_COMPANY-DE201508001046

PATIENT
  Age: 60 Year
  Sex: Male

DRUGS (2)
  1. CYRAMZA [Suspect]
     Active Substance: RAMUCIRUMAB
     Indication: METASTATIC GASTRIC CANCER
     Dosage: UNK, UNKNOWN
     Route: 065
  2. HERCEPTIN [Concomitant]
     Active Substance: TRASTUZUMAB

REACTIONS (14)
  - Intestinal ischaemia [Unknown]
  - Clostridial infection [Unknown]
  - Intestinal ulcer [Unknown]
  - Hypokalaemia [Unknown]
  - Diaphragmatic hernia [Unknown]
  - Nausea [Recovering/Resolving]
  - Enterococcal infection [Unknown]
  - Haemoptysis [Recovering/Resolving]
  - Gastrointestinal necrosis [Unknown]
  - Hepatic function abnormal [Unknown]
  - General physical health deterioration [Recovering/Resolving]
  - Gastrointestinal haemorrhage [Unknown]
  - Lung infection [Unknown]
  - Infection [Unknown]

NARRATIVE: CASE EVENT DATE: 201505
